FAERS Safety Report 16063083 (Version 1)
Quarter: 2019Q1

REPORT INFORMATION
  Report Type: Spontaneous
  Country: ES (occurrence: ES)
  Receive Date: 20190312
  Receipt Date: 20190312
  Transmission Date: 20190418
  Serious: Yes (Other)
  Sender: FDA-Public Use
  Company Number: ES-MYLANLABS-2019M1022200

PATIENT
  Age: 48 Year
  Sex: Female

DRUGS (1)
  1. OMEPRAZOLE. [Suspect]
     Active Substance: OMEPRAZOLE
     Indication: ENZYME INHIBITION
     Dosage: SHE TOOK OVERDOSE: 20MG, EVERY 6-8 HOURS (INSTEAD OF THE PRESCRIBED DOSE OF 20 MG/DAY); WITH ERRO...
     Route: 065

REACTIONS (3)
  - Drug abuse [Recovered/Resolved]
  - Symmetrical drug-related intertriginous and flexural exanthema [Recovered/Resolved]
  - Intentional overdose [Recovered/Resolved]
